FAERS Safety Report 7420685-5 (Version None)
Quarter: 2011Q2

REPORT INFORMATION
  Report Type: 
  Country: None (occurrence: None)
  Receive Date: 20110418
  Receipt Date: 20101130
  Transmission Date: 20111010
  Serious: Yes (Hospitalization, Other)
  Sender: FDA-Public Use
  Company Number: US-BAYER-201023273NA

PATIENT
  Age: 28 Year
  Sex: Female
  Weight: 54.422 kg

DRUGS (9)
  1. YASMIN [Suspect]
     Indication: PRODUCT USED FOR UNKNOWN INDICATION
  2. DIFLUCAN [Concomitant]
     Indication: PRODUCT USED FOR UNKNOWN INDICATION
  3. FLUCONAZOLE [Concomitant]
     Dosage: 150 MG, UNK
  4. DROSPIRENONE AND ETHINYL ESTRADIOL [Suspect]
     Indication: ACNE
     Dosage: UNK
     Dates: start: 20090301, end: 20090801
  5. KEPPRA [Concomitant]
     Indication: CONVULSION
     Dosage: UNK
     Dates: start: 20040101
  6. LEVETIRACETAM [Concomitant]
     Dosage: 500 MG, UNK
  7. PRENATAL PLUS IRON [Concomitant]
     Indication: PRODUCT USED FOR UNKNOWN INDICATION
  8. TETRACYCLIN [Concomitant]
     Indication: ACNE
  9. TETRACYCLINE [Concomitant]
     Dosage: 500 MG, UNK

REACTIONS (6)
  - CHOLELITHIASIS [None]
  - INJURY [None]
  - DIARRHOEA [None]
  - ABDOMINAL PAIN UPPER [None]
  - NAUSEA [None]
  - CHOLECYSTITIS ACUTE [None]
